FAERS Safety Report 6283224-0 (Version None)
Quarter: 2009Q3

REPORT INFORMATION
  Report Type: 
  Country: None (occurrence: None)
  Receive Date: 20090722
  Receipt Date: 20090722
  Transmission Date: 20100115
  Serious: No
  Sender: FDA-Public Use
  Company Number: None

PATIENT
  Age: 40 Year
  Sex: Male
  Weight: 167.8309 kg

DRUGS (1)
  1. ZICAM NASAL GEL .50 FL OZ MATRIXX [Suspect]
     Indication: NASOPHARYNGITIS
     Dosage: USED ABOUT 15+ TIMES 3X DAY NASAL
     Route: 045
     Dates: start: 20090401, end: 20090415

REACTIONS (4)
  - ANOSMIA [None]
  - HYPOSMIA [None]
  - NASOPHARYNGITIS [None]
  - RHINALGIA [None]
